FAERS Safety Report 18158033 (Version 1)
Quarter: 2020Q3

REPORT INFORMATION
  Report Type: Spontaneous
  Country: US (occurrence: US)
  Receive Date: 20200817
  Receipt Date: 20200817
  Transmission Date: 20201103
  Serious: No
  Sender: FDA-Public Use
  Company Number: US-MEDEXUS PHARMA, INC.-2020MED00066

PATIENT
  Age: 73 Year
  Sex: Female
  Weight: 77.1 kg

DRUGS (5)
  1. UNSPECIFIED BLOOD PRESSURE MEDICATION [Concomitant]
     Active Substance: UNSPECIFIED INGREDIENT
     Dosage: ^LOW DOSE^
  2. UNSPECIFIED MEDICATIONS [Concomitant]
     Active Substance: UNSPECIFIED INGREDIENT
  3. RASUVO [Suspect]
     Active Substance: METHOTREXATE SODIUM
     Indication: RHEUMATOID ARTHRITIS
     Dosage: 20 MG, 1X/WEEK ON FRIDAYS INJECTED INTO THE LEG
     Dates: start: 2018
  4. CELEBREX [Concomitant]
     Active Substance: CELECOXIB
     Dosage: 200 MG, 1X/DAY
  5. GABAPENTIN. [Concomitant]
     Active Substance: GABAPENTIN

REACTIONS (4)
  - Device failure [Recovered/Resolved]
  - Product dose omission issue [Unknown]
  - Musculoskeletal stiffness [Unknown]
  - Malaise [Unknown]

NARRATIVE: CASE EVENT DATE: 202003
